FAERS Safety Report 24962739 (Version 1)
Quarter: 2025Q1

REPORT INFORMATION
  Report Type: Spontaneous
  Country: CA (occurrence: CA)
  Receive Date: 20250212
  Receipt Date: 20250212
  Transmission Date: 20250409
  Serious: Yes (Congenital Anomaly, Other)
  Sender: SANDOZ
  Company Number: CA-002147023-NVSC2025CA022764

PATIENT

DRUGS (150)
  1. ADALIMUMAB [Suspect]
     Active Substance: ADALIMUMAB
     Route: 050
  2. ADALIMUMAB [Suspect]
     Active Substance: ADALIMUMAB
     Indication: Foetal exposure during pregnancy
     Route: 050
  3. ALENDRONATE SODIUM [Suspect]
     Active Substance: ALENDRONATE SODIUM
     Indication: Foetal exposure during pregnancy
     Route: 050
  4. ATOMOXETINE HYDROCHLORIDE [Suspect]
     Active Substance: ATOMOXETINE HYDROCHLORIDE
     Dosage: UNK (MATERNAL EXPOSURE DURING PREGNANCY: 1 DOSAGE FORM QD) (TRANSPLACENTAL)
     Route: 050
  5. ATOMOXETINE HYDROCHLORIDE [Suspect]
     Active Substance: ATOMOXETINE HYDROCHLORIDE
     Indication: Foetal exposure during pregnancy
     Route: 050
  6. ACETAMINOPHEN [Suspect]
     Active Substance: ACETAMINOPHEN
     Indication: Foetal exposure during pregnancy
     Route: 050
  7. ACETAMINOPHEN [Suspect]
     Active Substance: ACETAMINOPHEN
     Route: 050
  8. ACETAMINOPHEN\TRAMADOL HYDROCHLORIDE [Suspect]
     Active Substance: ACETAMINOPHEN\TRAMADOL HYDROCHLORIDE
     Indication: Foetal exposure during pregnancy
     Route: 050
  9. ACTEMRA [Suspect]
     Active Substance: TOCILIZUMAB
     Route: 050
  10. ACTEMRA [Suspect]
     Active Substance: TOCILIZUMAB
     Route: 050
  11. ACTEMRA [Suspect]
     Active Substance: TOCILIZUMAB
     Route: 050
  12. ACTEMRA [Suspect]
     Active Substance: TOCILIZUMAB
     Route: 050
  13. ACTEMRA [Suspect]
     Active Substance: TOCILIZUMAB
     Indication: Foetal exposure during pregnancy
     Route: 050
  14. ACTEMRA [Suspect]
     Active Substance: TOCILIZUMAB
     Route: 050
  15. ACTEMRA [Suspect]
     Active Substance: TOCILIZUMAB
     Route: 050
  16. ACTEMRA [Suspect]
     Active Substance: TOCILIZUMAB
     Route: 050
  17. ACTEMRA [Suspect]
     Active Substance: TOCILIZUMAB
     Route: 050
  18. ACTEMRA [Suspect]
     Active Substance: TOCILIZUMAB
     Route: 050
  19. AIMOVIG [Suspect]
     Active Substance: ERENUMAB-AOOE
     Indication: Foetal exposure during pregnancy
     Route: 050
  20. ALENDRONATE SODIUM\CHOLECALCIFEROL [Suspect]
     Active Substance: ALENDRONATE SODIUM\CHOLECALCIFEROL
     Indication: Foetal exposure during pregnancy
     Route: 050
  21. ALENDRONIC ACID [Suspect]
     Active Substance: ALENDRONIC ACID
     Indication: Foetal exposure during pregnancy
     Route: 050
  22. ALENDRONIC ACID [Suspect]
     Active Substance: ALENDRONIC ACID
     Route: 050
  23. LEFLUNOMIDE [Suspect]
     Active Substance: LEFLUNOMIDE
     Route: 050
  24. LEFLUNOMIDE [Suspect]
     Active Substance: LEFLUNOMIDE
     Indication: Foetal exposure during pregnancy
     Dosage: UNK (MATERNAL EXPOSURE DURING PREGNANCY: 10 MG QD) (TRANSPLACENTAL)
     Route: 050
  25. LEFLUNOMIDE [Suspect]
     Active Substance: LEFLUNOMIDE
     Route: 050
  26. LEFLUNOMIDE [Suspect]
     Active Substance: LEFLUNOMIDE
     Dosage: UNK (MATERNAL EXPOSURE DURING PREGNANCY: 20 MG QD) (TRANSPLACENTAL)
     Route: 050
  27. LEFLUNOMIDE [Suspect]
     Active Substance: LEFLUNOMIDE
     Dosage: UNK (MATERNAL EXPOSURE DURING PREGNANCY: 20 MG, QD) (TRANSPLACENTAL)
     Route: 050
  28. LEFLUNOMIDE [Suspect]
     Active Substance: LEFLUNOMIDE
     Route: 050
  29. LEFLUNOMIDE [Suspect]
     Active Substance: LEFLUNOMIDE
     Route: 050
  30. LEFLUNOMIDE [Suspect]
     Active Substance: LEFLUNOMIDE
     Route: 050
  31. LEFLUNOMIDE [Suspect]
     Active Substance: LEFLUNOMIDE
     Route: 050
  32. ARAVA [Suspect]
     Active Substance: LEFLUNOMIDE
     Indication: Foetal exposure during pregnancy
     Dosage: UNK (MATERNAL EXPOSURE DURING PREGNANCY: 20 MG QD) (TRANSPLACENTAL)
     Route: 050
  33. BERINERT [Suspect]
     Active Substance: HUMAN C1-ESTERASE INHIBITOR
     Indication: Foetal exposure during pregnancy
     Route: 050
  34. BOTULINUM TOXIN TYPE A [Suspect]
     Active Substance: BOTULINUM TOXIN TYPE A
     Indication: Foetal exposure during pregnancy
     Route: 050
  35. BUTRANS [Suspect]
     Active Substance: BUPRENORPHINE
     Indication: Foetal exposure during pregnancy
     Route: 050
  36. CANDESARTAN [Suspect]
     Active Substance: CANDESARTAN
     Indication: Foetal exposure during pregnancy
     Route: 050
  37. CELECOXIB [Suspect]
     Active Substance: CELECOXIB
     Dosage: UNK (MATERNAL EXPOSURE DURING PREGNANCY: UNK, QD) (TRANSPLACENTAL)
     Route: 050
  38. CELECOXIB [Suspect]
     Active Substance: CELECOXIB
     Indication: Foetal exposure during pregnancy
     Route: 050
  39. CELECOXIB [Suspect]
     Active Substance: CELECOXIB
     Route: 050
  40. CALCIUM CITRATE [Suspect]
     Active Substance: CALCIUM CITRATE
     Indication: Foetal exposure during pregnancy
     Route: 050
  41. CALCIUM GLUBIONATE [Suspect]
     Active Substance: CALCIUM GLUBIONATE
     Indication: Foetal exposure during pregnancy
     Route: 050
  42. CETIRIZINE HYDROCHLORIDE [Suspect]
     Active Substance: CETIRIZINE HYDROCHLORIDE
     Route: 050
  43. CETIRIZINE HYDROCHLORIDE [Suspect]
     Active Substance: CETIRIZINE HYDROCHLORIDE
     Route: 050
  44. CETIRIZINE HYDROCHLORIDE [Suspect]
     Active Substance: CETIRIZINE HYDROCHLORIDE
     Route: 050
  45. CETIRIZINE HYDROCHLORIDE [Suspect]
     Active Substance: CETIRIZINE HYDROCHLORIDE
     Route: 050
  46. CETIRIZINE HYDROCHLORIDE [Suspect]
     Active Substance: CETIRIZINE HYDROCHLORIDE
     Indication: Foetal exposure during pregnancy
     Route: 050
  47. CHLORHEXIDINE GLUCONATE [Suspect]
     Active Substance: CHLORHEXIDINE GLUCONATE
     Indication: Foetal exposure during pregnancy
     Route: 050
  48. CIMZIA [Suspect]
     Active Substance: CERTOLIZUMAB PEGOL
     Route: 050
  49. CIMZIA [Suspect]
     Active Substance: CERTOLIZUMAB PEGOL
     Route: 050
  50. CIMZIA [Suspect]
     Active Substance: CERTOLIZUMAB PEGOL
     Indication: Foetal exposure during pregnancy
     Route: 050
  51. CORTISONE [Suspect]
     Active Substance: CORTISONE
     Indication: Foetal exposure during pregnancy
     Route: 050
  52. CORTISONE ACETATE [Suspect]
     Active Substance: CORTISONE ACETATE
     Route: 050
  53. CORTISONE ACETATE [Suspect]
     Active Substance: CORTISONE ACETATE
     Route: 050
  54. CORTISONE ACETATE [Suspect]
     Active Substance: CORTISONE ACETATE
     Route: 050
  55. CORTISONE ACETATE [Suspect]
     Active Substance: CORTISONE ACETATE
     Indication: Foetal exposure during pregnancy
     Route: 050
  56. DESOXIMETASONE [Suspect]
     Active Substance: DESOXIMETASONE
     Indication: Foetal exposure during pregnancy
     Route: 050
  57. DESOXIMETASONE [Suspect]
     Active Substance: DESOXIMETASONE
     Route: 050
  58. DESOXIMETASONE [Suspect]
     Active Substance: DESOXIMETASONE
     Route: 050
  59. DOMPERIDONE MALEATE [Suspect]
     Active Substance: DOMPERIDONE MALEATE
     Indication: Foetal exposure during pregnancy
     Route: 050
  60. ENBREL [Suspect]
     Active Substance: ETANERCEPT
     Dosage: UNK (MATERNAL EXPOSURE DURING PREGNANCY: 10 MG QD) (TRANSPLACENTAL)
     Route: 050
  61. ENBREL [Suspect]
     Active Substance: ETANERCEPT
     Route: 050
  62. ENBREL [Suspect]
     Active Substance: ETANERCEPT
     Indication: Foetal exposure during pregnancy
     Dosage: UNK (MATERNAL EXPOSURE DURING PREGNANCY: 50 MG QD) (TRANSPLACENTAL)
     Route: 050
  63. ENBREL [Suspect]
     Active Substance: ETANERCEPT
     Route: 050
  64. ENBREL [Suspect]
     Active Substance: ETANERCEPT
     Route: 050
  65. FLUMETHASONE PIVALATE [Suspect]
     Active Substance: FLUMETHASONE PIVALATE
     Indication: Foetal exposure during pregnancy
     Route: 050
  66. FLUMETHASONE PIVALATE [Suspect]
     Active Substance: FLUMETHASONE PIVALATE
     Route: 050
  67. FLUMETHASONE\SALICYLIC ACID [Suspect]
     Active Substance: FLUMETHASONE\SALICYLIC ACID
     Indication: Foetal exposure during pregnancy
     Route: 050
  68. FOLIC ACID [Suspect]
     Active Substance: FOLIC ACID
     Route: 050
  69. FOLIC ACID [Suspect]
     Active Substance: FOLIC ACID
     Route: 050
  70. FOLIC ACID [Suspect]
     Active Substance: FOLIC ACID
     Route: 050
  71. FOLIC ACID [Suspect]
     Active Substance: FOLIC ACID
     Route: 050
  72. FOLIC ACID [Suspect]
     Active Substance: FOLIC ACID
     Route: 050
  73. FOLIC ACID [Suspect]
     Active Substance: FOLIC ACID
     Route: 050
  74. FOLIC ACID [Suspect]
     Active Substance: FOLIC ACID
     Route: 050
  75. FOLIC ACID [Suspect]
     Active Substance: FOLIC ACID
     Route: 050
  76. FOLIC ACID [Suspect]
     Active Substance: FOLIC ACID
     Indication: Foetal exposure during pregnancy
     Route: 050
  77. FOLIC ACID [Suspect]
     Active Substance: FOLIC ACID
     Route: 050
  78. FOSAMAX [Suspect]
     Active Substance: ALENDRONATE SODIUM
     Indication: Foetal exposure during pregnancy
     Route: 050
  79. FOSAMAX [Suspect]
     Active Substance: ALENDRONATE SODIUM
     Route: 050
  80. FOSAMAX [Suspect]
     Active Substance: ALENDRONATE SODIUM
     Route: 050
  81. HAIR KERATIN AMINO ACIDS GOLD COMPLEX [Suspect]
     Active Substance: HAIR KERATIN AMINO ACIDS GOLD COMPLEX
     Indication: Foetal exposure during pregnancy
     Route: 050
  82. GOLD SODIUM THIOMALATE [Suspect]
     Active Substance: GOLD SODIUM THIOMALATE
     Indication: Foetal exposure during pregnancy
     Route: 050
  83. GOLD SODIUM THIOMALATE [Suspect]
     Active Substance: GOLD SODIUM THIOMALATE
     Route: 050
  84. HUMIRA [Suspect]
     Active Substance: ADALIMUMAB
     Indication: Foetal exposure during pregnancy
     Route: 050
  85. HUMIRA [Suspect]
     Active Substance: ADALIMUMAB
     Route: 050
  86. HUMIRA [Suspect]
     Active Substance: ADALIMUMAB
     Route: 050
  87. HYDROXYCHLOROQUINE [Suspect]
     Active Substance: HYDROXYCHLOROQUINE
     Dosage: UNK (MATERNAL EXPOSURE DURING PREGNANCY: 400 MG QD) (TRANSPLACENTAL)
     Route: 050
  88. HYDROXYCHLOROQUINE [Suspect]
     Active Substance: HYDROXYCHLOROQUINE
     Indication: Foetal exposure during pregnancy
     Route: 050
  89. HYDROXYCHLOROQUINE [Suspect]
     Active Substance: HYDROXYCHLOROQUINE
     Route: 050
  90. IMURAN [Suspect]
     Active Substance: AZATHIOPRINE
     Indication: Foetal exposure during pregnancy
     Route: 050
  91. ISOPROPYL ALCOHOL [Suspect]
     Active Substance: ISOPROPYL ALCOHOL
     Route: 050
  92. ISOPROPYL ALCOHOL [Suspect]
     Active Substance: ISOPROPYL ALCOHOL
     Indication: Foetal exposure during pregnancy
     Route: 050
  93. ISOPROPYL ALCOHOL [Suspect]
     Active Substance: ISOPROPYL ALCOHOL
     Route: 050
  94. LEFLUNOMIDE [Suspect]
     Active Substance: LEFLUNOMIDE
     Dosage: UNK (MATERNAL EXPOSURE DURING PREGNANCY: 10 MG QD) (TRANSPLACENTAL)
     Route: 050
  95. LEFLUNOMIDE [Suspect]
     Active Substance: LEFLUNOMIDE
     Route: 050
  96. LEFLUNOMIDE [Suspect]
     Active Substance: LEFLUNOMIDE
     Indication: Foetal exposure during pregnancy
     Route: 050
  97. MAGNESIUM CITRATE [Suspect]
     Active Substance: MAGNESIUM CITRATE
     Indication: Foetal exposure during pregnancy
     Route: 050
  98. METHOTREXATE [Suspect]
     Active Substance: METHOTREXATE
     Dosage: UNK (MATERNAL EXPOSURE DURING PREGNANCY: 1 MG QW) (TRANSPLACENTAL)
     Route: 050
  99. METHOTREXATE [Suspect]
     Active Substance: METHOTREXATE
     Indication: Product used for unknown indication
     Dosage: UNK (MATERNAL EXPOSURE DURING PREGNANCY: 15 MG QW) (TRANSPLACENTAL)
     Route: 050
  100. METHOTREXATE [Suspect]
     Active Substance: METHOTREXATE
     Dosage: UNK (MATERNAL EXPOSURE DURING PREGNANCY: 25 MG QW) (TRANSPLACENTAL)
     Route: 050
  101. METHOTREXATE [Suspect]
     Active Substance: METHOTREXATE
     Dosage: UNK (MATERNAL EXPOSURE DURING PREGNANCY: UNK QW) (TRANSPLACENTAL)
     Route: 050
  102. METHYLPREDNISOLONE ACETATE [Suspect]
     Active Substance: METHYLPREDNISOLONE ACETATE
     Indication: Foetal exposure during pregnancy
     Route: 050
  103. METHYLPREDNISOLONE SODIUM SUCCINATE [Suspect]
     Active Substance: METHYLPREDNISOLONE SODIUM SUCCINATE
     Indication: Foetal exposure during pregnancy
     Route: 050
  104. MINOCYCLINE HYDROCHLORIDE [Suspect]
     Active Substance: MINOCYCLINE HYDROCHLORIDE
     Indication: Foetal exposure during pregnancy
     Route: 050
  105. MINOCYCLINE HYDROCHLORIDE [Suspect]
     Active Substance: MINOCYCLINE HYDROCHLORIDE
     Route: 050
  106. MYOCHRYSINE [Suspect]
     Active Substance: GOLD SODIUM THIOMALATE
     Indication: Foetal exposure during pregnancy
     Route: 050
  107. NAPROXEN [Suspect]
     Active Substance: NAPROXEN
     Indication: Foetal exposure during pregnancy
     Route: 050
  108. NAPROXEN SODIUM [Suspect]
     Active Substance: NAPROXEN SODIUM
     Indication: Foetal exposure during pregnancy
     Route: 050
  109. NICOTINAMIDE [Suspect]
     Active Substance: NIACINAMIDE
     Indication: Foetal exposure during pregnancy
     Route: 050
  110. NUCALA [Suspect]
     Active Substance: MEPOLIZUMAB
     Indication: Foetal exposure during pregnancy
     Route: 050
  111. OXYCODONE HYDROCHLORIDE [Suspect]
     Active Substance: OXYCODONE HYDROCHLORIDE
     Indication: Foetal exposure during pregnancy
     Route: 050
  112. ORENCIA [Suspect]
     Active Substance: ABATACEPT
     Indication: Foetal exposure during pregnancy
     Route: 050
  113. DICLOFENAC SODIUM [Suspect]
     Active Substance: DICLOFENAC SODIUM
     Indication: Foetal exposure during pregnancy
     Route: 050
  114. PERIOGARD [Suspect]
     Active Substance: CHLORHEXIDINE GLUCONATE
     Indication: Foetal exposure during pregnancy
     Route: 050
  115. PREDNISONE [Suspect]
     Active Substance: PREDNISONE
     Indication: Foetal exposure during pregnancy
     Dosage: UNK (MATERNAL EXPOSURE DURING PREGNANCY: 50 MG QD) (TRANSPLACENTAL)
     Route: 050
  116. PSEUDOEPHEDRINE HYDROCHLORIDE [Suspect]
     Active Substance: PSEUDOEPHEDRINE HYDROCHLORIDE
     Indication: Foetal exposure during pregnancy
     Route: 050
  117. RITUXIMAB [Suspect]
     Active Substance: RITUXIMAB
     Dosage: UNK (MATERNAL EXPOSURE DURING PREGNANCY: 1000 MG QD) (TRANSPLACENTAL)
     Route: 050
  118. RITUXIMAB [Suspect]
     Active Substance: RITUXIMAB
     Indication: Foetal exposure during pregnancy
     Dosage: UNK (MATERNAL EXPOSURE DURING PREGNANCY: 2000 MG, QD) (TRANSPLACENTAL)
     Route: 050
  119. RITUXIMAB [Suspect]
     Active Substance: RITUXIMAB
     Dosage: UNK (MATERNAL EXPOSURE DURING PREGNANCY: 365 MG, QD) (TRANSPLACENTAL)
     Route: 050
  120. RITUXIMAB [Suspect]
     Active Substance: RITUXIMAB
     Route: 050
  121. RITUXIMAB [Suspect]
     Active Substance: RITUXIMAB
     Route: 050
  122. RITUXIMAB [Suspect]
     Active Substance: RITUXIMAB
     Route: 050
  123. RAMIPRIL [Suspect]
     Active Substance: RAMIPRIL
     Indication: Foetal exposure during pregnancy
     Route: 050
  124. CETIRIZINE HYDROCHLORIDE\PSEUDOEPHEDRINE HYDROCHLORIDE [Suspect]
     Active Substance: CETIRIZINE HYDROCHLORIDE\PSEUDOEPHEDRINE HYDROCHLORIDE
     Indication: Foetal exposure during pregnancy
     Route: 050
  125. CETIRIZINE HYDROCHLORIDE\PSEUDOEPHEDRINE HYDROCHLORIDE [Suspect]
     Active Substance: CETIRIZINE HYDROCHLORIDE\PSEUDOEPHEDRINE HYDROCHLORIDE
     Route: 050
  126. CETIRIZINE HYDROCHLORIDE\PSEUDOEPHEDRINE HYDROCHLORIDE [Suspect]
     Active Substance: CETIRIZINE HYDROCHLORIDE\PSEUDOEPHEDRINE HYDROCHLORIDE
     Route: 050
  127. REMICADE [Suspect]
     Active Substance: INFLIXIMAB
     Route: 050
  128. REMICADE [Suspect]
     Active Substance: INFLIXIMAB
     Route: 050
  129. REMICADE [Suspect]
     Active Substance: INFLIXIMAB
     Route: 050
  130. REMICADE [Suspect]
     Active Substance: INFLIXIMAB
     Indication: Foetal exposure during pregnancy
     Route: 050
  131. SIMPONI [Suspect]
     Active Substance: GOLIMUMAB
     Indication: Foetal exposure during pregnancy
     Route: 050
  132. SIMPONI [Suspect]
     Active Substance: GOLIMUMAB
     Route: 050
  133. STELARA [Suspect]
     Active Substance: USTEKINUMAB
     Route: 050
  134. STELARA [Suspect]
     Active Substance: USTEKINUMAB
     Indication: Foetal exposure during pregnancy
     Route: 050
  135. SULFASALAZINE [Suspect]
     Active Substance: SULFASALAZINE
     Dosage: UNK (MATERNAL EXPOSURE DURING PREGNANCY: 1 G QD) (TRANSPLACENTAL)
     Route: 050
  136. SULFASALAZINE [Suspect]
     Active Substance: SULFASALAZINE
     Dosage: UNK (MATERNAL EXPOSURE DURING PREGNANCY: 1 G QD) (TRANSPLACENTAL)
     Route: 050
  137. SULFASALAZINE [Suspect]
     Active Substance: SULFASALAZINE
     Route: 050
  138. SULFASALAZINE [Suspect]
     Active Substance: SULFASALAZINE
     Route: 050
  139. SULFASALAZINE [Suspect]
     Active Substance: SULFASALAZINE
     Indication: Foetal exposure during pregnancy
     Route: 050
  140. SULFASALAZINE [Suspect]
     Active Substance: SULFASALAZINE
     Dosage: UNK (MATERNAL EXPOSURE DURING PREGNANCY: 2 MG QD) (TRANSPLACENTAL)
     Route: 050
  141. SULFASALAZINE [Suspect]
     Active Substance: SULFASALAZINE
     Route: 050
  142. TOPAMAX [Suspect]
     Active Substance: TOPIRAMATE
     Indication: Foetal exposure during pregnancy
     Dosage: UNK (MATERNAL EXPOSURE DURING PREGNANCY: 25 MG QD) (TRANSPLACENTAL)
     Route: 050
  143. TOPAMAX [Suspect]
     Active Substance: TOPIRAMATE
     Route: 050
  144. TOPAMAX [Suspect]
     Active Substance: TOPIRAMATE
     Route: 050
  145. VITAMIN C [Suspect]
     Active Substance: ASCORBIC ACID
     Route: 050
  146. VITAMIN C [Suspect]
     Active Substance: ASCORBIC ACID
     Indication: Foetal exposure during pregnancy
     Route: 050
  147. VOLTAREN [Suspect]
     Active Substance: DICLOFENAC SODIUM
     Indication: Foetal exposure during pregnancy
     Route: 050
  148. VOLTAREN [Suspect]
     Active Substance: DICLOFENAC SODIUM
     Route: 050
  149. XELJANZ [Suspect]
     Active Substance: TOFACITINIB CITRATE
     Indication: Foetal exposure during pregnancy
     Dosage: UNK (MATERNAL EXPOSURE DURING PREGNANCY: 10 MG QD) (TRANSPLACENTAL)
     Route: 050
  150. XELJANZ [Suspect]
     Active Substance: TOFACITINIB CITRATE
     Dosage: UNK (MATERNAL EXPOSURE DURING PREGNANCY: 20 MG QD) (TRANSPLACENTAL)
     Route: 050

REACTIONS (2)
  - Congenital anomaly [Unknown]
  - Foetal exposure during pregnancy [Unknown]
